APPROVED DRUG PRODUCT: FOSAMPRENAVIR CALCIUM
Active Ingredient: FOSAMPRENAVIR CALCIUM
Strength: EQ 700MG BASE
Dosage Form/Route: TABLET;ORAL
Application: A204024 | Product #001 | TE Code: AB
Applicant: SUN PHARMACEUTICAL INDUSTRIES LTD
Approved: Nov 20, 2019 | RLD: No | RS: No | Type: RX